FAERS Safety Report 21258700 (Version 1)
Quarter: 2022Q3

REPORT INFORMATION
  Report Type: Report from Study
  Country: CA (occurrence: CA)
  Receive Date: 20220826
  Receipt Date: 20220826
  Transmission Date: 20221027
  Serious: Yes (Death)
  Sender: FDA-Public Use
  Company Number: CA-NOVARTISPH-NVSC2021CA240757

PATIENT
  Age: 58 Year
  Sex: Male

DRUGS (5)
  1. COSENTYX [Suspect]
     Active Substance: SECUKINUMAB
     Indication: Ankylosing spondylitis
     Dosage: 150 MG, Q3W
     Route: 058
     Dates: start: 20190222
  2. NAPROXEN [Concomitant]
     Active Substance: NAPROXEN
     Indication: Pain
     Dosage: UNK
     Route: 048
     Dates: start: 2003, end: 201811
  3. NAPROXEN [Concomitant]
     Active Substance: NAPROXEN
     Indication: Musculoskeletal stiffness
  4. CELEBREX [Concomitant]
     Active Substance: CELECOXIB
     Indication: Pain
     Dosage: UNK
     Route: 048
     Dates: start: 201811
  5. CELEBREX [Concomitant]
     Active Substance: CELECOXIB
     Indication: Inflammation

REACTIONS (2)
  - Neoplasm malignant [Fatal]
  - Inappropriate schedule of product administration [Unknown]

NARRATIVE: CASE EVENT DATE: 20190222
